FAERS Safety Report 9049459 (Version 1)
Quarter: 2013Q1

REPORT INFORMATION
  Report Type: Spontaneous
  Country: US (occurrence: US)
  Receive Date: 20130205
  Receipt Date: 20130205
  Transmission Date: 20140127
  Serious: Yes (Hospitalization)
  Sender: FDA-Public Use
  Company Number: US-GLAXOSMITHKLINE-A1009944A

PATIENT
  Age: 70 Year
  Sex: Female

DRUGS (3)
  1. AVANDIA [Suspect]
     Indication: TYPE 2 DIABETES MELLITUS
     Route: 048
  2. LISINOPRIL [Concomitant]
  3. ARTHRITIS MEDICATION [Concomitant]

REACTIONS (10)
  - Cerebrovascular accident [Recovered/Resolved with Sequelae]
  - Subdural haematoma [Unknown]
  - Hemiparesis [Unknown]
  - Disability [Unknown]
  - Fall [Unknown]
  - Memory impairment [Unknown]
  - Ill-defined disorder [Unknown]
  - Headache [Unknown]
  - Hyperhidrosis [Unknown]
  - Drug ineffective [Unknown]
